FAERS Safety Report 5544543-6 (Version None)
Quarter: 2007Q4

REPORT INFORMATION
  Report Type: 
  Country: None (occurrence: None)
  Receive Date: 20071210
  Receipt Date: 20061208
  Transmission Date: 20080405
  Serious: No
  Sender: FDA-Public Use
  Company Number: US-AMGEN-KDL202940

PATIENT
  Sex: Female

DRUGS (1)
  1. ENBREL [Suspect]
     Indication: PSORIATIC ARTHROPATHY
     Route: 058
     Dates: start: 20011201

REACTIONS (5)
  - FLUID RETENTION [None]
  - NASOPHARYNGITIS [None]
  - PSORIATIC ARTHROPATHY [None]
  - RESPIRATORY DISORDER [None]
  - WEIGHT INCREASED [None]
